FAERS Safety Report 5035500-7 (Version None)
Quarter: 2006Q2

REPORT INFORMATION
  Report Type: 
  Country: None (occurrence: None)
  Receive Date: 20060526
  Receipt Date: 20060407
  Transmission Date: 20061013
  Serious: No
  Sender: FDA-Public Use
  Company Number: FABR-11476

PATIENT
  Age: 64 Year
  Sex: Female
  Weight: 69.5 kg

DRUGS (3)
  1. FABRAZYME [Suspect]
     Indication: FABRY'S DISEASE
     Dosage: 70 MG Q2WKS IV
     Route: 042
     Dates: start: 20050509
  2. WARFARIN SODIUM [Concomitant]
  3. SPIRONOLACTONE [Concomitant]

REACTIONS (1)
  - ATRIAL FIBRILLATION [None]
